FAERS Safety Report 14009861 (Version 8)
Quarter: 2018Q3

REPORT INFORMATION
  Report Type: Spontaneous
  Country: US (occurrence: US)
  Receive Date: 20170925
  Receipt Date: 20180716
  Transmission Date: 20181010
  Serious: Yes (Death, Hospitalization)
  Sender: FDA-Public Use
  Company Number: US-ACTELION-A-NJ2017-159922

PATIENT
  Age: 60 Year
  Sex: Female
  Weight: 46.26 kg

DRUGS (8)
  1. VELETRI [Suspect]
     Active Substance: EPOPROSTENOL
     Indication: PULMONARY ARTERIAL HYPERTENSION
     Dosage: 76 NG/KG, PER MIN
     Route: 042
  2. TRACLEER [Suspect]
     Active Substance: BOSENTAN
     Indication: PULMONARY ARTERIAL HYPERTENSION
     Dosage: 125 MG, BID
     Route: 048
     Dates: start: 20170309
  3. AMLODIPINE [Concomitant]
     Active Substance: AMLODIPINE BESYLATE
  4. VELETRI [Suspect]
     Active Substance: EPOPROSTENOL
     Dosage: 75 NG/KG, PER MIN
     Route: 042
  5. VELETRI [Suspect]
     Active Substance: EPOPROSTENOL
     Dosage: 68.5 NG/KG, PER MIN
     Route: 042
  6. COUMADIN [Concomitant]
     Active Substance: WARFARIN SODIUM
  7. SILDENAFIL. [Concomitant]
     Active Substance: SILDENAFIL
  8. VELETRI [Suspect]
     Active Substance: EPOPROSTENOL
     Dosage: UNK
     Route: 042

REACTIONS (18)
  - Device dislocation [Unknown]
  - Device alarm issue [Recovered/Resolved]
  - Condition aggravated [Recovered/Resolved]
  - Device related infection [Unknown]
  - Catheter site haemorrhage [Unknown]
  - Device malfunction [Recovered/Resolved]
  - Syncope [Recovered/Resolved]
  - Catheter site haematoma [Unknown]
  - Catheter placement [Recovered/Resolved]
  - Central venous catheterisation [Unknown]
  - Abdominal discomfort [Unknown]
  - Device occlusion [Recovered/Resolved]
  - Loss of consciousness [Recovered/Resolved]
  - Pneumonia [Unknown]
  - Cor pulmonale [Unknown]
  - Cardio-respiratory arrest [Fatal]
  - Pulmonary arterial hypertension [Recovered/Resolved]
  - Haemorrhage [Unknown]

NARRATIVE: CASE EVENT DATE: 20180619
